FAERS Safety Report 8312710-4 (Version None)
Quarter: 2012Q2

REPORT INFORMATION
  Report Type: 
  Country: None (occurrence: None)
  Receive Date: 20120426
  Receipt Date: 20120416
  Transmission Date: 20120825
  Serious: Yes (Hospitalization)
  Sender: FDA-Public Use
  Company Number: US-BIOGENIDEC-2011BI019625

PATIENT
  Age: 23 Year
  Sex: Male
  Weight: 92 kg

DRUGS (17)
  1. TYSABRI [Suspect]
     Indication: MULTIPLE SCLEROSIS
     Route: 042
     Dates: start: 20071112, end: 20110511
  2. KEPPRA XR [Concomitant]
     Indication: LARYNGOSPASM
     Route: 048
     Dates: start: 20110503
  3. EPLERENONE [Concomitant]
     Route: 048
  4. CANDESARTAN CILEXETIL [Concomitant]
     Indication: HYPERTENSION
     Route: 048
  5. CLONIDINE [Concomitant]
     Route: 048
  6. GABAPENTIN [Concomitant]
     Indication: LARYNGOSPASM
     Route: 048
  7. DIAZEPAM [Concomitant]
     Indication: LARYNGOSPASM
     Route: 048
  8. AMLODIPINE [Concomitant]
     Indication: HYPERTENSION
     Route: 048
  9. CHOLECALCIFEROL [Concomitant]
     Route: 048
  10. GUANFACINE HYDROCHLORIDE [Concomitant]
     Route: 048
  11. MINOXIDIL [Concomitant]
     Indication: HYPERTENSION
     Route: 048
  12. GABAPENTIN [Concomitant]
     Route: 048
     Dates: end: 20110501
  13. KEPPRA XR [Concomitant]
     Indication: TREMOR
     Route: 048
     Dates: start: 20110503
  14. GABAPENTIN [Concomitant]
     Indication: HICCUPS
     Route: 048
  15. DILAUDID [Concomitant]
     Indication: PAIN
     Route: 048
  16. LABETALOL HCL [Concomitant]
     Indication: HYPERTENSION
     Route: 048
  17. GABAPENTIN [Concomitant]
     Route: 048
     Dates: end: 20110501

REACTIONS (1)
  - PROGRESSIVE MULTIFOCAL LEUKOENCEPHALOPATHY [None]
